FAERS Safety Report 10235031 (Version 2)
Quarter: 2014Q3

REPORT INFORMATION
  Report Type: Report from Study
  Country: NL (occurrence: NL)
  Receive Date: 20140613
  Receipt Date: 20140919
  Transmission Date: 20150326
  Serious: Yes (Death, Other)
  Sender: FDA-Public Use
  Company Number: PHHY2014NL072218

PATIENT
  Sex: Male

DRUGS (13)
  1. SPIRIVA [Concomitant]
     Active Substance: TIOTROPIUM BROMIDE MONOHYDRATE
     Dosage: UNK UKN, UNK
  2. MONO-CEDOCARD [Concomitant]
     Dosage: UNK UKN, UNK
  3. ZOMETA [Suspect]
     Active Substance: ZOLEDRONIC ACID
     Indication: PROSTATE CANCER METASTATIC
     Dosage: 4 MG/100 ML, ONCE EVERY 4 WEEKS
     Route: 042
     Dates: start: 20131213
  4. LIPITOR [Concomitant]
     Active Substance: ATORVASTATIN CALCIUM
     Dosage: UNK UKN, UNK
  5. BECLOMETASONE [Concomitant]
     Active Substance: BECLOMETHASONE DIPROPIONATE
     Dosage: UNK UKN, UNK
  6. THEOLAIR [Concomitant]
     Active Substance: THEOPHYLLINE
     Dosage: UNK UKN, UNK
  7. BUMETANIDE. [Concomitant]
     Active Substance: BUMETANIDE
     Dosage: UNK UKN, UNK
  8. LISINOPRIL. [Concomitant]
     Active Substance: LISINOPRIL
     Dosage: UNK UKN, UNK
  9. NITROGLYCERIN. [Concomitant]
     Active Substance: NITROGLYCERIN
     Dosage: UNK UKN, UNK
  10. BISOPROLOL [Concomitant]
     Active Substance: BISOPROLOL
     Dosage: UNK UKN, UNK
  11. SALBUTAMOL [Concomitant]
     Active Substance: ALBUTEROL
     Dosage: UNK UKN, UNK
  12. SINTROM [Concomitant]
     Active Substance: ACENOCOUMAROL
     Dosage: UNK UKN, UNK
  13. PANTAZOLE [Concomitant]
     Dosage: UNK UKN, UNK

REACTIONS (4)
  - Terminal state [Fatal]
  - Prostate cancer metastatic [Fatal]
  - Malignant neoplasm progression [Fatal]
  - Back pain [Fatal]
